FAERS Safety Report 7746646-4 (Version None)
Quarter: 2011Q3

REPORT INFORMATION
  Report Type: 
  Country: None (occurrence: None)
  Receive Date: 20110908
  Receipt Date: 20110829
  Transmission Date: 20111222
  Serious: Yes (Hospitalization, Other)
  Sender: FDA-Public Use
  Company Number: FK201101805

PATIENT
  Age: 14 Year
  Sex: Male

DRUGS (3)
  1. OXALIPLATIN [Suspect]
     Indication: NEUROENDOCRINE CARCINOMA
     Dosage: 85 MG/M2/2H
  2. IRINOTECAN HCL [Suspect]
     Indication: NEUROENDOCRINE CARCINOMA
     Dosage: 175MG/M2/2H
  3. GEMCITABINE [Suspect]
     Indication: NEUROENDOCRINE CARCINOMA
     Dosage: 1000 MG/M2/0.5H

REACTIONS (3)
  - C-REACTIVE PROTEIN INCREASED [None]
  - GASTROINTESTINAL TOXICITY [None]
  - HAEMATOTOXICITY [None]
